FAERS Safety Report 22323073 (Version 1)
Quarter: 2023Q2

REPORT INFORMATION
  Report Type: Spontaneous
  Country: US (occurrence: None)
  Receive Date: 20230512
  Receipt Date: 20230512
  Transmission Date: 20230721
  Serious: Yes (Life-Threatening, Disabling, Other)
  Sender: FDA-Public Use
  Company Number: None

PATIENT
  Age: 41 Year
  Sex: Male
  Weight: 114.75 kg

DRUGS (1)
  1. CIPROFLOXACIN HYDROCHLORIDE [Suspect]
     Active Substance: CIPROFLOXACIN HYDROCHLORIDE
     Indication: Epididymitis
     Dosage: FREQUENCY : TWICE A DAY;?
     Route: 048
     Dates: start: 20220605, end: 20220605

REACTIONS (17)
  - Collagen disorder [None]
  - Arthropathy [None]
  - Ligament disorder [None]
  - Connective tissue disorder [None]
  - Cervical spinal stenosis [None]
  - Neuropathy peripheral [None]
  - Deafness [None]
  - Vision blurred [None]
  - Fatigue [None]
  - Cardiac disorder [None]
  - Tendon injury [None]
  - Muscle atrophy [None]
  - Weight decreased [None]
  - Skin disorder [None]
  - Disturbance in attention [None]
  - Memory impairment [None]
  - Muscle twitching [None]

NARRATIVE: CASE EVENT DATE: 20220605
